FAERS Safety Report 4882641-0 (Version None)
Quarter: 2006Q1

REPORT INFORMATION
  Report Type: 
  Country: None (occurrence: None)
  Receive Date: 20060117
  Receipt Date: 20051003
  Transmission Date: 20060701
  Serious: Yes (Other)
  Sender: FDA-Public Use
  Company Number: US-MERCK-0510USA02616

PATIENT
  Age: 36 Year
  Sex: Female
  Weight: 100 kg

DRUGS (3)
  1. VIOXX [Suspect]
     Indication: ARTHRITIS
     Route: 048
     Dates: start: 20000125, end: 20040924
  2. IBUPROFEN [Concomitant]
     Route: 065
  3. ASPIRIN [Concomitant]
     Route: 065

REACTIONS (9)
  - ANXIETY [None]
  - CONVULSION [None]
  - DENTAL DISCOMFORT [None]
  - DEPRESSION [None]
  - ISCHAEMIC STROKE [None]
  - LIMB INJURY [None]
  - MIGRAINE [None]
  - PELVIC PAIN [None]
  - TOOTHACHE [None]
